FAERS Safety Report 5192587-9 (Version None)
Quarter: 2006Q4

REPORT INFORMATION
  Report Type: 
  Country: None (occurrence: None)
  Receive Date: 20061220
  Receipt Date: 20061212
  Transmission Date: 20070319
  Serious: No
  Sender: FDA-Public Use
  Company Number: 163-21880-06090297

PATIENT
  Age: 49 Year
  Sex: Male

DRUGS (1)
  1. REVLIMID [Suspect]
     Indication: MULTIPLE MYELOMA
     Dosage: 25 MG, QHS, ORAL
     Route: 048
     Dates: start: 20060718

REACTIONS (2)
  - ABDOMINAL PAIN [None]
  - THYROID ADENOMA [None]
